FAERS Safety Report 4287634-2 (Version None)
Quarter: 2004Q1

REPORT INFORMATION
  Report Type: 
  Country: None (occurrence: None)
  Receive Date: 20040205
  Receipt Date: 20040123
  Transmission Date: 20041129
  Serious: Yes (Hospitalization, Other)
  Sender: FDA-Public Use
  Company Number: USA040156850

PATIENT
  Age: 7 Year
  Sex: Male

DRUGS (1)
  1. STRATTERA [Suspect]
     Indication: ATTENTION DEFICIT/HYPERACTIVITY DISORDER
     Dosage: 35 MG/DAY
     Dates: start: 20030313

REACTIONS (3)
  - DEPRESSION [None]
  - ELECTROENCEPHALOGRAM ABNORMAL [None]
  - SIMPLE PARTIAL SEIZURES [None]
